FAERS Safety Report 15222546 (Version 1)
Quarter: 2018Q3

REPORT INFORMATION
  Report Type: Spontaneous
  Country: GB (occurrence: GB)
  Receive Date: 20180731
  Receipt Date: 20180731
  Transmission Date: 20181010
  Serious: Yes (Other)
  Sender: FDA-Public Use
  Company Number: GB-PFIZER INC-2018300877

PATIENT
  Age: 31 Year
  Sex: Female
  Weight: 58 kg

DRUGS (15)
  1. COLOFAC /00139402/ [Concomitant]
     Dosage: 1 DF, 1X/DAY
     Dates: start: 20150811
  2. CLENIL MODULITE [Concomitant]
     Active Substance: BECLOMETHASONE DIPROPIONATE
     Dosage: 4 DF, 1X/DAY
     Route: 055
     Dates: start: 20170926
  3. MIRTAZAPINE. [Concomitant]
     Active Substance: MIRTAZAPINE
     Dosage: ONCE A DAY.
     Dates: start: 20180423, end: 20180425
  4. DOXYCYCLINE MONOHYDRATE [Suspect]
     Active Substance: DOXYCYCLINE
     Indication: LOWER RESPIRATORY TRACT INFECTION
     Dosage: 3 DF, SINGLE
     Dates: start: 20180628
  5. CLOTRIMAZOLE. [Concomitant]
     Active Substance: CLOTRIMAZOLE
     Dosage: 1 DF, 2?3 TIMES DAY
     Dates: start: 20180416, end: 20180423
  6. FLUCONAZOLE. [Concomitant]
     Active Substance: FLUCONAZOLE
     Dosage: 1 TODAY AND REPEAT AFTER 1  WEEK
     Dates: start: 20180525, end: 20180601
  7. PREDNISOLONE. [Concomitant]
     Active Substance: PREDNISOLONE
     Dosage: 4 DF, 1X/DAY
     Dates: start: 20180504, end: 20180507
  8. CLARITHROMYCIN. [Concomitant]
     Active Substance: CLARITHROMYCIN
     Dosage: 2 DF, 1X/DAY
     Dates: start: 20180515, end: 20180522
  9. FEXOFENADINE [Concomitant]
     Active Substance: FEXOFENADINE\FEXOFENADINE HYDROCHLORIDE
     Dosage: 1 DF, 1X/DAY TAKE IN THE EVENING
     Dates: start: 20170216, end: 20180504
  10. ESCITALOPRAM [Concomitant]
     Active Substance: ESCITALOPRAM OXALATE
     Dosage: USE AS DIRECTED
     Dates: start: 20180329, end: 20180423
  11. DULOXETINE. [Concomitant]
     Active Substance: DULOXETINE
     Dosage: ONCE A DAY.
     Dates: start: 20180425
  12. OMEPRAZOLE. [Concomitant]
     Active Substance: OMEPRAZOLE
     Dosage: 2 DF, 1X/DAY
     Dates: start: 20180608
  13. SALBUTAMOL [Concomitant]
     Active Substance: ALBUTEROL
     Dosage: 2 DF, AS NEEDED
     Route: 055
     Dates: start: 20161024
  14. FUSIDIC ACID [Concomitant]
     Active Substance: FUSIDIC ACID
     Dosage: 4 DF, 1X/DAY
     Dates: start: 20180511, end: 20180518
  15. LUCETTE [Concomitant]
     Dosage: 1 DF, AS DIRECTED
     Dates: start: 20180426

REACTIONS (3)
  - Throat tightness [Unknown]
  - Pharyngeal oedema [Recovering/Resolving]
  - Oropharyngeal pain [Unknown]

NARRATIVE: CASE EVENT DATE: 20180628
